FAERS Safety Report 11569549 (Version 1)
Quarter: 2015Q3

REPORT INFORMATION
  Report Type: Spontaneous
  Country: US (occurrence: US)
  Receive Date: 20150929
  Receipt Date: 20150929
  Transmission Date: 20151125
  Serious: No
  Sender: FDA-Public Use
  Company Number: US-SHIONOGI, INC-2015000338

PATIENT
  Age: 56 Year
  Sex: Female

DRUGS (2)
  1. OSPHENA [Suspect]
     Active Substance: OSPEMIFENE
     Indication: URINARY TRACT INFECTION
     Dosage: UNK
     Route: 065
     Dates: start: 201412
  2. OSPHENA [Suspect]
     Active Substance: OSPEMIFENE
     Indication: OFF LABEL USE

REACTIONS (5)
  - Therapeutic response unexpected [Unknown]
  - Vulvovaginal burning sensation [Unknown]
  - Vaginal discharge [Unknown]
  - Vulvovaginal pruritus [Unknown]
  - Off label use [Unknown]

NARRATIVE: CASE EVENT DATE: 201502
